FAERS Safety Report 25390250 (Version 1)
Quarter: 2025Q2

REPORT INFORMATION
  Report Type: Spontaneous
  Country: US (occurrence: None)
  Receive Date: 20250602
  Receipt Date: 20250602
  Transmission Date: 20250717
  Serious: Yes (Other)
  Sender: FDA-CTU
  Company Number: None

PATIENT
  Age: 54 Year
  Sex: Male
  Weight: 111.6 kg

DRUGS (12)
  1. WIXELA INHUB [Suspect]
     Active Substance: FLUTICASONE PROPIONATE\SALMETEROL XINAFOATE
     Indication: Asthma
     Dosage: FREQUENCY : TWICE A DAY;?
     Route: 055
     Dates: start: 20241223, end: 20250519
  2. SYMBICORT [Suspect]
     Active Substance: BUDESONIDE\FORMOTEROL FUMARATE DIHYDRATE
  3. TESTOSTERONE [Concomitant]
     Active Substance: TESTOSTERONE
  4. FLUTICASONE PROPIONATE [Concomitant]
     Active Substance: FLUTICASONE PROPIONATE
  5. ALBUTEROL [Concomitant]
     Active Substance: ALBUTEROL
  6. TEMAZEPAM [Concomitant]
     Active Substance: TEMAZEPAM
  7. TADALAFIL [Concomitant]
     Active Substance: TADALAFIL
  8. LORATADINE [Concomitant]
     Active Substance: LORATADINE
  9. DIETARY SUPPLEMENT\HERBALS\MILK THISTLE [Concomitant]
     Active Substance: MILK THISTLE
  10. QUERCETIN [Concomitant]
     Active Substance: QUERCETIN
  11. B6 + B12 [Concomitant]
  12. Diamine Oxidase [Concomitant]

REACTIONS (4)
  - Therapeutic product effect incomplete [None]
  - Product substitution issue [None]
  - Patient dissatisfaction with treatment [None]
  - Cough [None]

NARRATIVE: CASE EVENT DATE: 20250519
